FAERS Safety Report 4655576-6 (Version None)
Quarter: 2005Q2

REPORT INFORMATION
  Report Type: 
  Country: None (occurrence: None)
  Receive Date: 20050505
  Receipt Date: 20050422
  Transmission Date: 20051028
  Serious: Yes (Other)
  Sender: FDA-Public Use
  Company Number: KII-2005-0016247

PATIENT
  Age: 19 Year
  Sex: Female

DRUGS (1)
  1. HYDROMORPHONE HCL [Suspect]
     Indication: PAIN
     Dosage: PARENTERAL
     Route: 051

REACTIONS (2)
  - COMA [None]
  - OXYGEN SATURATION DECREASED [None]
